FAERS Safety Report 8535893-X (Version None)
Quarter: 2012Q3

REPORT INFORMATION
  Report Type: 
  Country: None (occurrence: None)
  Receive Date: 20120725
  Receipt Date: 20120718
  Transmission Date: 20120928
  Serious: Yes (Other)
  Sender: FDA-Public Use
  Company Number: PHHY2012MX062804

PATIENT
  Sex: Female

DRUGS (5)
  1. BUDESONIDE [Suspect]
     Indication: ASTHMA
     Dosage: 400 UG, BID
  2. CALCIUM CARBONATE [Concomitant]
     Indication: OSTEOPOROSIS
     Dosage: UNK UKN, QD
     Dates: start: 20100101
  3. METHOTREXATE [Concomitant]
     Indication: ARTHRITIS
     Dosage: 5 DF, QW
     Dates: start: 20080101
  4. FORADIL [Suspect]
     Indication: ASTHMA
     Dosage: 400 UG, BID
  5. FOLIC ACID [Concomitant]
     Indication: OSTEOPOROSIS
     Dosage: UNK UKN, QD
     Dates: start: 20100101

REACTIONS (2)
  - PULMONARY BULLA [None]
  - LUNG CYST [None]
